FAERS Safety Report 7714760-5 (Version None)
Quarter: 2011Q3

REPORT INFORMATION
  Report Type: 
  Country: None (occurrence: None)
  Receive Date: 20110808
  Receipt Date: 20110602
  Transmission Date: 20111222
  Serious: No
  Sender: FDA-Public Use
  Company Number: 2011000092

PATIENT
  Age: 12 Year
  Sex: Female
  Weight: 51.7 kg

DRUGS (1)
  1. ULESFIA [Suspect]
     Indication: LICE INFESTATION
     Dosage: ONE BOTTLE, TOPICAL
     Route: 061
     Dates: start: 20110101, end: 20110101

REACTIONS (2)
  - MEDICATION ERROR [None]
  - DRUG INEFFECTIVE [None]
